FAERS Safety Report 4883706-X (Version None)
Quarter: 2006Q1

REPORT INFORMATION
  Report Type: 
  Country: None (occurrence: None)
  Receive Date: 20060118
  Receipt Date: 20051129
  Transmission Date: 20060701
  Serious: Yes (Death, Other)
  Sender: FDA-Public Use
  Company Number: PHEH2005US12972

PATIENT
  Age: 72 Year
  Sex: Male

DRUGS (2)
  1. ZOMETA [Suspect]
     Indication: METASTASES TO BONE
     Dosage: 4 MG, QMO
     Route: 042
     Dates: start: 20031201
  2. LUPRON [Concomitant]
     Indication: PROSTATE CANCER
     Dosage: 30 MG, UNK
     Route: 042
     Dates: start: 19990901

REACTIONS (11)
  - BONE OPERATION [None]
  - GINGIVAL PAIN [None]
  - MALIGNANT NEOPLASM PROGRESSION [None]
  - OPEN WOUND [None]
  - ORAL SOFT TISSUE DISORDER [None]
  - OSTEOMYELITIS [None]
  - OSTEONECROSIS [None]
  - PAIN [None]
  - PURULENT DISCHARGE [None]
  - SWELLING [None]
  - WOUND DEBRIDEMENT [None]
